FAERS Safety Report 6936224-9 (Version None)
Quarter: 2010Q3

REPORT INFORMATION
  Report Type: 
  Country: None (occurrence: None)
  Receive Date: 20100823
  Receipt Date: 20100813
  Transmission Date: 20110219
  Serious: Yes (Hospitalization)
  Sender: FDA-Public Use
  Company Number: AT-PFIZER INC-2008099252

PATIENT
  Age: 65 Year
  Sex: Male
  Weight: 100 kg

DRUGS (5)
  1. SUNITINIB MALATE [Suspect]
     Indication: NON-SMALL CELL LUNG CANCER
     Dosage: 37.5 MG, 1X/DAY, 4 WEEKS
     Route: 048
     Dates: start: 20081107
  2. ERLOTINIB HYDROCHLORIDE [Suspect]
     Indication: NON-SMALL CELL LUNG CANCER
     Dosage: 150 MG, 1X/DAY, 4 WEEKS
     Route: 048
     Dates: start: 20081107
  3. DIHYDROCODEINE BITARTRATE INJ [Concomitant]
     Route: 048
     Dates: start: 20081110
  4. SPIRIVA [Concomitant]
     Route: 055
     Dates: start: 20050101
  5. LOPERAMIDE [Concomitant]
     Route: 048
     Dates: start: 20081118

REACTIONS (2)
  - DERMATITIS ACNEIFORM [None]
  - PALMAR-PLANTAR ERYTHRODYSAESTHESIA SYNDROME [None]
